FAERS Safety Report 8242638-X (Version None)
Quarter: 2012Q1

REPORT INFORMATION
  Report Type: 
  Country: None (occurrence: None)
  Receive Date: 20120329
  Receipt Date: 20120323
  Transmission Date: 20120608
  Serious: Yes (Hospitalization, Other)
  Sender: FDA-Public Use
  Company Number: PHHY2011JP40831

PATIENT
  Sex: Male

DRUGS (16)
  1. AFINITOR [Suspect]
     Indication: METASTATIC RENAL CELL CARCINOMA
     Dosage: 10 MG DAILY
     Route: 048
     Dates: start: 20110216, end: 20110306
  2. AFINITOR [Suspect]
     Dosage: 5 MG DAILY
     Dates: start: 20110512
  3. MUCOSTA [Concomitant]
     Indication: METASTATIC RENAL CELL CARCINOMA
     Dosage: 300 MG, UNK
     Route: 048
     Dates: start: 20100428
  4. CINAL [Concomitant]
     Indication: METASTATIC RENAL CELL CARCINOMA
     Dosage: 2 G, UNK
     Dates: start: 20100928
  5. MOBIC [Concomitant]
     Indication: METASTATIC RENAL CELL CARCINOMA
     Dosage: 10 MG, UNK
     Route: 048
     Dates: start: 20100604
  6. FERROUS CITRATE [Concomitant]
     Indication: METASTATIC RENAL CELL CARCINOMA
     Dosage: 100 G, UNK
     Route: 048
     Dates: start: 20100802
  7. CODEINE PHOSPHATE [Concomitant]
     Indication: METASTATIC RENAL CELL CARCINOMA
     Dosage: 20 MG, UNK
     Route: 048
     Dates: start: 20101129
  8. LAC B [Concomitant]
     Indication: METASTATIC RENAL CELL CARCINOMA
     Dosage: 3 G, UNK
     Route: 048
  9. MAGNESIUM OXIDE [Concomitant]
     Indication: METASTATIC RENAL CELL CARCINOMA
     Dosage: 1.5 G, UNK
     Route: 048
     Dates: start: 20100604
  10. BROTIZOLAM [Concomitant]
     Indication: METASTATIC RENAL CELL CARCINOMA
     Dosage: 0.25 MG, UNK
     Route: 048
     Dates: start: 20100529
  11. LANSOPRAZOLE [Concomitant]
     Indication: METASTATIC RENAL CELL CARCINOMA
     Dosage: 15 MG, UNK
     Route: 048
     Dates: start: 20100507
  12. MAALOX                                  /NET/ [Concomitant]
     Indication: METASTATIC RENAL CELL CARCINOMA
     Dosage: 1.2 G, UNK
     Route: 048
  13. AFINITOR [Suspect]
     Dosage: 5 MG DAILY
     Route: 048
     Dates: start: 20110328, end: 20110411
  14. DIOVAN [Concomitant]
     Indication: METASTATIC RENAL CELL CARCINOMA
     Dosage: 80 MG, UNK
     Route: 048
     Dates: start: 20100428
  15. AMLODIPINE BESYLATE [Concomitant]
     Indication: METASTATIC RENAL CELL CARCINOMA
     Dosage: 5 MG, UNK
     Route: 048
     Dates: start: 20100428
  16. CALCIUM POLYSTYRENE SULFONATE [Concomitant]
     Indication: METASTATIC RENAL CELL CARCINOMA
     Dosage: 75 MG, UNK
     Route: 048
     Dates: start: 20101129

REACTIONS (8)
  - C-REACTIVE PROTEIN INCREASED [None]
  - COLITIS ISCHAEMIC [None]
  - ANAEMIA [None]
  - GASTROINTESTINAL HAEMORRHAGE [None]
  - PLATELET COUNT DECREASED [None]
  - BLOOD ALKALINE PHOSPHATASE INCREASED [None]
  - BLOOD LACTATE DEHYDROGENASE INCREASED [None]
  - WHITE BLOOD CELL COUNT DECREASED [None]
